FAERS Safety Report 20158798 (Version 1)
Quarter: 2021Q4

REPORT INFORMATION
  Report Type: Spontaneous
  Country: DE (occurrence: DE)
  Receive Date: 20211208
  Receipt Date: 20211208
  Transmission Date: 20220303
  Serious: Yes (Other)
  Sender: FDA-Public Use
  Company Number: DE-VIIV HEALTHCARE ULC-DE2021EME232447

PATIENT
  Sex: Male

DRUGS (11)
  1. EFAVIRENZ [Suspect]
     Active Substance: EFAVIRENZ
     Indication: HIV infection
     Dosage: UNK
     Dates: start: 1997
  2. INDINAVIR SULFATE [Suspect]
     Active Substance: INDINAVIR SULFATE
     Indication: HIV infection
     Dosage: UNK
     Dates: start: 1997
  3. SAQUINAVIR [Suspect]
     Active Substance: SAQUINAVIR
     Indication: HIV infection
     Dosage: UNK
     Dates: start: 1997
  4. NELFINAVIR [Suspect]
     Active Substance: NELFINAVIR
     Indication: HIV infection
     Dosage: UNK
     Dates: start: 1997
  5. RITONAVIR [Suspect]
     Active Substance: RITONAVIR
     Indication: HIV infection
     Dosage: UNK
     Dates: start: 1997
  6. ATAZANAVIR\RITONAVIR [Suspect]
     Active Substance: ATAZANAVIR\RITONAVIR
     Indication: HIV infection
     Dosage: UNK
  7. LAMIVUDINE [Suspect]
     Active Substance: LAMIVUDINE
     Indication: HIV infection
     Dosage: UNK
     Dates: start: 1997
  8. LAMIVUDINE [Suspect]
     Active Substance: LAMIVUDINE
     Dosage: UNK
  9. LAMIVUDINE [Suspect]
     Active Substance: LAMIVUDINE
     Dosage: UNK
  10. AZT [Suspect]
     Active Substance: ZIDOVUDINE
     Indication: HIV infection
     Dosage: UNK
     Dates: start: 1997
  11. STAVUDINE [Suspect]
     Active Substance: STAVUDINE
     Indication: HIV infection
     Dosage: UNK
     Dates: start: 1997

REACTIONS (1)
  - Pathogen resistance [Unknown]

NARRATIVE: CASE EVENT DATE: 20080101
